FAERS Safety Report 11521003 (Version 1)
Quarter: 2015Q3

REPORT INFORMATION
  Report Type: Spontaneous
  Country: US (occurrence: None)
  Receive Date: 20150917
  Receipt Date: 20150917
  Transmission Date: 20151125
  Serious: Yes (Disabling)
  Sender: FDA-Public Use
  Company Number: None

PATIENT
  Age: 53 Year
  Sex: Female
  Weight: 142.88 kg

DRUGS (10)
  1. COLACE [Concomitant]
  2. ABILIFY [Concomitant]
  3. CARVEDILOL [Concomitant]
  4. FOLIC ACID [Concomitant]
  5. TRUVADA [Concomitant]
  6. ATIVAN [Concomitant]
  7. AMMONIUM LACTATE CREAM 12% [Suspect]
     Active Substance: AMMONIUM LACTATE
     Dosage: 140 GMS. TOTAL IN TUBE ?NET WHGT. 5 OZ ?APPLIED TO SKIN
     Dates: start: 20150601, end: 20150715
  8. AMLODIPINE [Concomitant]
  9. NORVIR [Concomitant]
  10. PREZISTA [Concomitant]

REACTIONS (2)
  - Application site pruritus [None]
  - Erythema [None]

NARRATIVE: CASE EVENT DATE: 20150715
